FAERS Safety Report 18806591 (Version 1)
Quarter: 2021Q1

REPORT INFORMATION
  Report Type: Spontaneous
  Country: US (occurrence: US)
  Receive Date: 20210129
  Receipt Date: 20210129
  Transmission Date: 20210419
  Serious: No
  Sender: FDA-Public Use
  Company Number: US-AMGEN-USASP2021013021

PATIENT
  Age: 55 Year
  Sex: Male

DRUGS (1)
  1. ERENUMAB [Suspect]
     Active Substance: ERENUMAB
     Indication: FACIAL NEURALGIA
     Dosage: UNK
     Route: 065

REACTIONS (1)
  - Off label use [Unknown]
